FAERS Safety Report 25805062 (Version 1)
Quarter: 2025Q3

REPORT INFORMATION
  Report Type: Spontaneous
  Country: EU (occurrence: EU)
  Receive Date: 20250916
  Receipt Date: 20250916
  Transmission Date: 20251021
  Serious: Yes (Other)
  Sender: AUROBINDO
  Company Number: EU-MLMSERVICE-20250818-PI617687-00278-2

PATIENT
  Age: 48 Year

DRUGS (7)
  1. RAMIPRIL [Suspect]
     Active Substance: RAMIPRIL
     Indication: Dilated cardiomyopathy
     Route: 065
  2. RAMIPRIL [Suspect]
     Active Substance: RAMIPRIL
     Indication: Heart failure with reduced ejection fraction
  3. BISOPROLOL [Concomitant]
     Active Substance: BISOPROLOL
     Indication: Heart failure with reduced ejection fraction
     Dosage: 5 MILLIGRAM, TWO TIMES A DAY
     Route: 065
  4. IVABRADINE [Concomitant]
     Active Substance: IVABRADINE
     Indication: Heart failure with reduced ejection fraction
     Dosage: 10 MILLIGRAM, TWO TIMES A DAY
     Route: 065
  5. CANRENONE [Concomitant]
     Active Substance: CANRENONE
     Indication: Heart failure with reduced ejection fraction
     Route: 065
  6. CANRENONE [Concomitant]
     Active Substance: CANRENONE
     Route: 065
  7. VALSARTAN [Concomitant]
     Active Substance: VALSARTAN
     Indication: Heart failure with reduced ejection fraction
     Route: 065

REACTIONS (3)
  - Renal impairment [Recovering/Resolving]
  - Hypotension [Recovered/Resolved]
  - Drug intolerance [Recovering/Resolving]
